FAERS Safety Report 15508908 (Version 1)
Quarter: 2018Q4

REPORT INFORMATION
  Report Type: Spontaneous
  Country: US (occurrence: US)
  Receive Date: 20181016
  Receipt Date: 20181016
  Transmission Date: 20190205
  Serious: No
  Sender: FDA-Public Use
  Company Number: US-AMGEN-USASP2018119492

PATIENT
  Age: 53 Year
  Sex: Female

DRUGS (2)
  1. PARSABIV [Suspect]
     Active Substance: ETELCALCETIDE HYDROCHLORIDE
     Dosage: 5 MG, 3 TIMES/WK
     Route: 040
     Dates: start: 20180801, end: 20180827
  2. PARSABIV [Suspect]
     Active Substance: ETELCALCETIDE HYDROCHLORIDE
     Indication: HYPERPARATHYROIDISM SECONDARY
     Dosage: 2.5 MG, 3 TIMES/WK
     Route: 040
     Dates: start: 20180627, end: 2018

REACTIONS (4)
  - Underdose [Unknown]
  - Epistaxis [Unknown]
  - Tongue biting [Unknown]
  - Tongue haemorrhage [Not Recovered/Not Resolved]

NARRATIVE: CASE EVENT DATE: 20180627
